FAERS Safety Report 8265446-2 (Version None)
Quarter: 2012Q2

REPORT INFORMATION
  Report Type: 
  Country: None (occurrence: None)
  Receive Date: 20120403
  Receipt Date: 20120321
  Transmission Date: 20120825
  Serious: Yes (Death, Other)
  Sender: FDA-Public Use
  Company Number: ADR-2012-00491

PATIENT
  Age: 30 Year
  Sex: Male

DRUGS (1)
  1. BACLOFEN [Suspect]
     Dosage: SEE B5

REACTIONS (2)
  - MEDICAL DEVICE COMPLICATION [None]
  - PROCEDURAL COMPLICATION [None]
